FAERS Safety Report 17925897 (Version 1)
Quarter: 2020Q2

REPORT INFORMATION
  Report Type: Spontaneous
  Country: GB (occurrence: GB)
  Receive Date: 20200622
  Receipt Date: 20200622
  Transmission Date: 20200714
  Serious: Yes (Other)
  Sender: FDA-Public Use
  Company Number: NVSC2020GB172890

PATIENT
  Age: 83 Year
  Sex: Female

DRUGS (9)
  1. PREDNISOLONE. [Suspect]
     Active Substance: PREDNISOLONE
     Dosage: 5-10 MG, QD
     Route: 065
     Dates: end: 200702
  2. MYCOPHENOLATE [Concomitant]
     Active Substance: MYCOPHENOLIC ACID
     Indication: AUTOIMMUNE HAEMOLYTIC ANAEMIA
     Dosage: 500 MG, BID
     Route: 065
  3. PREDNISOLONE. [Suspect]
     Active Substance: PREDNISOLONE
     Indication: AUTOIMMUNE HAEMOLYTIC ANAEMIA
     Dosage: HD-PDN
     Route: 065
  4. RITUXIMAB. [Concomitant]
     Active Substance: RITUXIMAB
     Indication: AUTOIMMUNE HAEMOLYTIC ANAEMIA
     Dosage: 375 MG/M2 (4 DOSES)
     Route: 065
  5. PREDNISOLONE. [Suspect]
     Active Substance: PREDNISOLONE
     Dosage: 5-15 MG PRN DAILY
     Route: 065
     Dates: start: 201811
  6. PREDNISOLONE. [Suspect]
     Active Substance: PREDNISOLONE
     Dosage: HD-PDN WAS TAPERED OVER 3 MONTHS
     Route: 065
  7. CYCLOSPORINE. [Concomitant]
     Active Substance: CYCLOSPORINE
     Indication: AUTOIMMUNE HAEMOLYTIC ANAEMIA
     Dosage: 50?150 MG BD BY MOUTH
     Route: 048
     Dates: end: 201305
  8. PREDNISOLONE. [Suspect]
     Active Substance: PREDNISOLONE
     Dosage: 5-15 MG DAILY (HD-PDN TAPERED OVER 6 MONTHS)
     Route: 065
  9. AZATHIOPRINE. [Suspect]
     Active Substance: AZATHIOPRINE
     Indication: AUTOIMMUNE HAEMOLYTIC ANAEMIA
     Dosage: UNK
     Route: 065
     Dates: end: 200309

REACTIONS (4)
  - Renal impairment [Unknown]
  - Autoimmune haemolytic anaemia [Unknown]
  - Hepatitis [Unknown]
  - Thrombocytopenia [Unknown]

NARRATIVE: CASE EVENT DATE: 2009
